FAERS Safety Report 13523746 (Version 2)
Quarter: 2017Q3

REPORT INFORMATION
  Report Type: Spontaneous
  Country: HR (occurrence: HR)
  Receive Date: 20170508
  Receipt Date: 20170720
  Transmission Date: 20171127
  Serious: Yes (Hospitalization, Disabling, Other)
  Sender: FDA-Public Use
  Company Number: HR-ABBVIE-17K-216-1963143-00

PATIENT
  Sex: Female
  Weight: 65 kg

DRUGS (9)
  1. MEDROL [Concomitant]
     Active Substance: METHYLPREDNISOLONE
     Indication: UVEITIS
  2. ZALDIAR [Concomitant]
     Active Substance: ACETAMINOPHEN\TRAMADOL HYDROCHLORIDE
     Indication: PAIN
     Dosage: 37,5 / 325
     Route: 048
     Dates: start: 20060703
  3. HUMIRA [Suspect]
     Active Substance: ADALIMUMAB
     Route: 058
     Dates: start: 20170131, end: 20170316
  4. HUMIRA [Suspect]
     Active Substance: ADALIMUMAB
     Indication: PSORIATIC ARTHROPATHY
     Route: 058
     Dates: start: 20161010, end: 20161221
  5. METHOTREXATE. [Concomitant]
     Active Substance: METHOTREXATE
     Indication: PSORIATIC ARTHROPATHY
     Dosage: 12 MG
     Route: 048
     Dates: start: 20091231, end: 20170213
  6. METHOTREXATE. [Concomitant]
     Active Substance: METHOTREXATE
     Indication: UVEITIS
  7. MEDROL [Concomitant]
     Active Substance: METHYLPREDNISOLONE
     Indication: PSORIATIC ARTHROPATHY
     Route: 048
     Dates: start: 20090618, end: 20160125
  8. EMANERA [Concomitant]
     Active Substance: ESOMEPRAZOLE MAGNESIUM
     Indication: PROPHYLAXIS
     Route: 048
     Dates: start: 20091231
  9. EMANERA [Concomitant]
     Active Substance: ESOMEPRAZOLE MAGNESIUM
     Indication: GASTROINTESTINAL DISORDER

REACTIONS (13)
  - Hypoaesthesia [Not Recovered/Not Resolved]
  - Tremor [Recovered/Resolved with Sequelae]
  - Paraesthesia [Recovered/Resolved with Sequelae]
  - Blood folate decreased [Unknown]
  - Quadriplegia [Recovered/Resolved with Sequelae]
  - Demyelination [Unknown]
  - Condition aggravated [Unknown]
  - Antinuclear antibody positive [Unknown]
  - Motor dysfunction [Not Recovered/Not Resolved]
  - Coordination abnormal [Recovered/Resolved with Sequelae]
  - Antinuclear antibody [Unknown]
  - Gait disturbance [Recovered/Resolved with Sequelae]
  - Ataxia [Unknown]

NARRATIVE: CASE EVENT DATE: 2017
